FAERS Safety Report 21218242 (Version 6)
Quarter: 2022Q4

REPORT INFORMATION
  Report Type: Spontaneous
  Country: US (occurrence: US)
  Receive Date: 20220816
  Receipt Date: 20221114
  Transmission Date: 20230112
  Serious: No
  Sender: FDA-Public Use
  Company Number: US-PFIZER INC-202200752505

PATIENT
  Age: 65 Year
  Sex: Female
  Weight: 122.47 kg

DRUGS (1)
  1. IBRANCE [Suspect]
     Active Substance: PALBOCICLIB
     Indication: Breast cancer metastatic
     Dosage: 125 MG

REACTIONS (14)
  - Stress [Unknown]
  - Dizziness [Unknown]
  - Confusional state [Unknown]
  - Rash erythematous [Unknown]
  - Pyrexia [Unknown]
  - Skin exfoliation [Unknown]
  - Wound [Unknown]
  - Rash [Unknown]
  - Feeling hot [Unknown]
  - Erythema [Unknown]
  - Malaise [Unknown]
  - Hypersensitivity [Unknown]
  - Sunburn [Unknown]
  - Wound secretion [Unknown]
